FAERS Safety Report 9461388 (Version 1)
Quarter: 2013Q3

REPORT INFORMATION
  Report Type: Spontaneous
  Country: DE (occurrence: DE)
  Receive Date: 20130816
  Receipt Date: 20130816
  Transmission Date: 20140515
  Serious: Yes (Other)
  Sender: FDA-Public Use
  Company Number: DE-JNJFOC-20130802252

PATIENT
  Sex: 0

DRUGS (2)
  1. REGAINE MAENNER SCHAUM [Suspect]
     Route: 061
  2. REGAINE MAENNER SCHAUM [Suspect]
     Indication: ALOPECIA
     Dosage: FOR 2 TO 3 WEEKS
     Route: 061

REACTIONS (4)
  - Tinnitus [Not Recovered/Not Resolved]
  - Stress [Unknown]
  - Off label use [Recovered/Resolved]
  - Headache [Unknown]
